FAERS Safety Report 8095349-8 (Version None)
Quarter: 2012Q1

REPORT INFORMATION
  Report Type: 
  Country: None (occurrence: None)
  Receive Date: 20120131
  Receipt Date: 20120120
  Transmission Date: 20120608
  Serious: Yes (Hospitalization)
  Sender: FDA-Public Use
  Company Number: US-BAYER-201034826NA

PATIENT
  Age: 30 Year
  Sex: Female
  Weight: 108 kg

DRUGS (17)
  1. SULFAMETHOXAZOLE AND TRIMETHOPRIM DOUBLE STRENGTH [Concomitant]
  2. ZOCOR [Concomitant]
  3. CIPROFLOXACIN [Concomitant]
  4. YAZ [Suspect]
     Indication: PREMENSTRUAL SYNDROME
     Dosage: UNK
     Dates: start: 20080201, end: 20080401
  5. PROMETHAZINE [Concomitant]
  6. KETOROLAC TROMETHAMINE [Concomitant]
  7. NASONEX [Concomitant]
  8. PAROXETINE HCL [Concomitant]
  9. DEXAMETHASONE SODIUM PHOSPHATE [Concomitant]
     Dosage: UNK
     Dates: start: 20100324
  10. ALLERGY MEDICATION [Concomitant]
  11. HYDROCODONE BITARTRATE AND ACETAMINOPHEN [Concomitant]
  12. LISINOPRIL [Concomitant]
  13. METOPROLOL TARTRATE [Concomitant]
  14. NALBUPHINE HYDROCHLORIDE [Concomitant]
     Dosage: UNK
     Dates: start: 20100215
  15. PROMETHAZINE HYDROCHLORIDE [Concomitant]
  16. SEROQUEL [Concomitant]
  17. ROCEPHIN [Concomitant]
     Dosage: UNK
     Dates: start: 20090930

REACTIONS (3)
  - ACUTE MYOCARDIAL INFARCTION [None]
  - MYOCARDIAL INFARCTION [None]
  - CORONARY ARTERY DISEASE [None]
